FAERS Safety Report 5833824-4 (Version None)
Quarter: 2008Q3

REPORT INFORMATION
  Report Type: 
  Country: None (occurrence: None)
  Receive Date: 20080801
  Receipt Date: 20080717
  Transmission Date: 20090109
  Serious: Yes (Other)
  Sender: FDA-Public Use
  Company Number: ALK_00654_2008

PATIENT
  Sex: Female
  Weight: 54.4316 kg

DRUGS (6)
  1. VIVITROL [Suspect]
     Indication: ALCOHOLISM
     Dosage: (380 MG 1X/MONTH INTRAMUSCULAR)
     Route: 030
     Dates: start: 20080711
  2. ZOLOFT [Concomitant]
  3. CAMPRAL /01016802/ [Concomitant]
  4. ACYCLOVIR [Concomitant]
  5. TRAZODONE HCL [Concomitant]
  6. VISTARIL /00058402/ [Concomitant]

REACTIONS (12)
  - ABDOMINAL PAIN UPPER [None]
  - CHILLS [None]
  - DIARRHOEA [None]
  - DIZZINESS [None]
  - HYPERHIDROSIS [None]
  - INJECTION SITE HAEMATOMA [None]
  - INJECTION SITE INDURATION [None]
  - INJECTION SITE NODULE [None]
  - INJECTION SITE PAIN [None]
  - NAUSEA [None]
  - SKIN CANCER [None]
  - VOMITING [None]
